FAERS Safety Report 10089550 (Version 1)
Quarter: 2014Q2

REPORT INFORMATION
  Report Type: Spontaneous
  Country: IR (occurrence: IR)
  Receive Date: 20140421
  Receipt Date: 20140421
  Transmission Date: 20141212
  Serious: Yes (Hospitalization, Disabling, Other)
  Sender: FDA-Public Use
  Company Number: IR-ASTRAZENECA-2014SE25327

PATIENT
  Age: 71 Year
  Sex: Female

DRUGS (2)
  1. LIDOCAINE [Suspect]
     Route: 058
  2. FORMALIN [Suspect]
     Route: 058

REACTIONS (22)
  - Wrong drug administered [Unknown]
  - Injection site necrosis [Recovering/Resolving]
  - Corneal epithelium defect [Recovered/Resolved]
  - Corneal oedema [Recovering/Resolving]
  - Optic neuritis [Recovering/Resolving]
  - Cataract [Recovering/Resolving]
  - Visual acuity reduced [Recovering/Resolving]
  - Purulence [Recovering/Resolving]
  - Injection site oedema [Recovering/Resolving]
  - Eyelid function disorder [Recovering/Resolving]
  - Ophthalmoplegia [Recovering/Resolving]
  - Extraocular muscle disorder [Recovering/Resolving]
  - Cranial nerve disorder [Recovering/Resolving]
  - Hypopyon [Recovering/Resolving]
  - Ocular toxicity [Recovering/Resolving]
  - Anterior chamber disorder [Recovering/Resolving]
  - Visual evoked potentials abnormal [Recovering/Resolving]
  - Osteonecrosis [Unknown]
  - Injection site pain [Recovering/Resolving]
  - Hypoaesthesia eye [Recovering/Resolving]
  - Pupil fixed [Recovering/Resolving]
  - Pupillary reflex impaired [Recovering/Resolving]
